FAERS Safety Report 19609712 (Version 4)
Quarter: 2021Q3

REPORT INFORMATION
  Report Type: Report from Study
  Country: US (occurrence: US)
  Receive Date: 20210726
  Receipt Date: 20210928
  Transmission Date: 20211014
  Serious: Yes (Other)
  Sender: FDA-Public Use
  Company Number: NVSC2021US157419

PATIENT
  Sex: Female

DRUGS (1)
  1. COSENTYX [Suspect]
     Active Substance: SECUKINUMAB
     Indication: PSORIASIS
     Dosage: 300 MG, QMO (EVERY 4 WEEKS)
     Route: 058

REACTIONS (6)
  - Urethral pain [Unknown]
  - Dysuria [Unknown]
  - Bladder pain [Unknown]
  - Renal disorder [Unknown]
  - Urinary tract infection fungal [Unknown]
  - Therapeutic product effect incomplete [Unknown]
